FAERS Safety Report 5091151-X (Version None)
Quarter: 2006Q3

REPORT INFORMATION
  Report Type: 
  Country: None (occurrence: None)
  Receive Date: 20060824
  Receipt Date: 20060817
  Transmission Date: 20061208
  Serious: Yes (Other)
  Sender: FDA-Public Use
  Company Number: 2006100439

PATIENT
  Age: 31 Year
  Sex: Female
  Weight: 64.8644 kg

DRUGS (1)
  1. LIPITOR [Suspect]
     Indication: BLOOD CHOLESTEROL INCREASED
     Dosage: 10 MG (10 MG, 1 IN 1 D)
     Dates: start: 20060101

REACTIONS (2)
  - GASTROOESOPHAGEAL REFLUX DISEASE [None]
  - PAIN [None]
